FAERS Safety Report 14184830 (Version 1)
Quarter: 2017Q4

REPORT INFORMATION
  Report Type: Spontaneous
  Country: US (occurrence: US)
  Receive Date: 20171113
  Receipt Date: 20171113
  Transmission Date: 20180321
  Serious: No
  Sender: FDA-Public Use
  Company Number: US-BAUSCH-BL-2017-027820

PATIENT
  Age: 21 Year
  Sex: Female
  Weight: 49.94 kg

DRUGS (2)
  1. ALAWAY [Suspect]
     Active Substance: KETOTIFEN FUMARATE
     Indication: HYPERSENSITIVITY
     Dosage: ONE DROP IN EACH EYE TWICE DAILY
     Route: 047
     Dates: start: 2017
  2. ALAWAY [Suspect]
     Active Substance: KETOTIFEN FUMARATE
     Dosage: TWO DROPS IN EACH EYE ONCE
     Route: 047
     Dates: start: 20170920

REACTIONS (2)
  - No adverse event [Unknown]
  - Extra dose administered [Unknown]

NARRATIVE: CASE EVENT DATE: 20170920
